FAERS Safety Report 20826535 (Version 1)
Quarter: 2022Q2

REPORT INFORMATION
  Report Type: Report from Study
  Country: BR (occurrence: BR)
  Receive Date: 20220513
  Receipt Date: 20220513
  Transmission Date: 20220721
  Serious: Yes (Other)
  Sender: FDA-Public Use
  Company Number: BR-JNJFOC-20220516773

PATIENT
  Age: 53 Year
  Sex: Female
  Weight: 46 kg

DRUGS (2)
  1. REMICADE [Suspect]
     Active Substance: INFLIXIMAB
     Indication: Colitis ulcerative
     Dosage: PATIENT ALSO REPORTED 09-JUN-2021 AS TREATMENT START DATE.
     Route: 042
     Dates: start: 20210722, end: 20211124
  2. REMICADE [Suspect]
     Active Substance: INFLIXIMAB
     Indication: Colitis

REACTIONS (1)
  - Colectomy [Unknown]

NARRATIVE: CASE EVENT DATE: 20211126
